FAERS Safety Report 14426789 (Version 1)
Quarter: 2018Q1

REPORT INFORMATION
  Report Type: Spontaneous
  Country: US (occurrence: US)
  Receive Date: 20180123
  Receipt Date: 20180123
  Transmission Date: 20180509
  Serious: No
  Sender: FDA-Public Use
  Company Number: US-GLAXOSMITHKLINE-US2018010084

PATIENT
  Sex: Male

DRUGS (10)
  1. GABAPENTIN. [Concomitant]
     Active Substance: GABAPENTIN
  2. CLONIDINE. [Concomitant]
     Active Substance: CLONIDINE
  3. VITAMIN A [Concomitant]
     Active Substance: VITAMIN A
  4. LISINOPRIL. [Concomitant]
     Active Substance: LISINOPRIL
  5. GLUCOTROL [Concomitant]
     Active Substance: GLIPIZIDE
  6. NOVOLOG [Concomitant]
     Active Substance: INSULIN ASPART
  7. BREO ELLIPTA [Suspect]
     Active Substance: FLUTICASONE FUROATE\VILANTEROL TRIFENATATE
     Indication: ASTHMA
     Dosage: 1 PUFF(S), UNK
     Dates: start: 2017, end: 201707
  8. BREO ELLIPTA [Suspect]
     Active Substance: FLUTICASONE FUROATE\VILANTEROL TRIFENATATE
     Dosage: 100/25
     Dates: start: 201712
  9. CARTIA (DILTIAZEM HYDROCHLORIDE) [Concomitant]
  10. VITAMIN D3 [Concomitant]
     Active Substance: CHOLECALCIFEROL

REACTIONS (1)
  - Nightmare [Recovered/Resolved]

NARRATIVE: CASE EVENT DATE: 2017
